FAERS Safety Report 5620136-7 (Version None)
Quarter: 2008Q1

REPORT INFORMATION
  Report Type: 
  Country: None (occurrence: None)
  Receive Date: 20080208
  Receipt Date: 20080129
  Transmission Date: 20080703
  Serious: Yes (Life-Threatening, Other)
  Sender: FDA-Public Use
  Company Number: CA-ELI_LILLY_AND_COMPANY-CA200801006732

PATIENT
  Age: 72 Year
  Sex: Female

DRUGS (13)
  1. FORTEO [Suspect]
     Indication: OSTEOPOROSIS
     Dosage: 20 UG, DAILY (1/D)
     Route: 058
     Dates: start: 20061228
  2. MICARDIS [Concomitant]
  3. SYNTHROID [Concomitant]
  4. PREMARIN [Concomitant]
  5. MAVIK [Concomitant]
  6. NEXIUM [Concomitant]
  7. CALCIUM GLUCONATE [Concomitant]
  8. VITAMIN D [Concomitant]
  9. MULTIVITAMINS, COMBINATIONS [Concomitant]
  10. VITAMIN A [Concomitant]
  11. BETA-CAROTIN [Concomitant]
  12. PULMICORT [Concomitant]
  13. OXEZE TURBUHALER [Concomitant]

REACTIONS (1)
  - CARDIAC ARREST [None]
